FAERS Safety Report 13660253 (Version 1)
Quarter: 2017Q2

REPORT INFORMATION
  Report Type: Spontaneous
  Country: CO (occurrence: US)
  Receive Date: 20170616
  Receipt Date: 20170616
  Transmission Date: 20170830
  Serious: No
  Sender: FDA-Public Use
  Company Number: CO-009507513-1705COL014544

PATIENT
  Sex: Female

DRUGS (1)
  1. IMPLANON [Suspect]
     Active Substance: ETONOGESTREL
     Indication: CONTRACEPTION
     Dosage: UNK
     Route: 059

REACTIONS (6)
  - Vulvovaginal dryness [Unknown]
  - Headache [Unknown]
  - Alopecia [Unknown]
  - Hormone level abnormal [Unknown]
  - Acne [Unknown]
  - Breast pain [Unknown]
